FAERS Safety Report 13841913 (Version 2)
Quarter: 2018Q3

REPORT INFORMATION
  Report Type: Report from Study
  Country: US (occurrence: US)
  Receive Date: 20170807
  Receipt Date: 20180801
  Transmission Date: 20181010
  Serious: No
  Sender: FDA-Public Use
  Company Number: US-AMGEN-USASL2016109749

PATIENT
  Age: 68 Year
  Sex: Female

DRUGS (1)
  1. NPLATE [Suspect]
     Active Substance: ROMIPLOSTIM
     Indication: IMMUNE THROMBOCYTOPENIC PURPURA
     Dosage: QWK
     Route: 065
     Dates: start: 20160122

REACTIONS (4)
  - Muscle spasms [Not Recovered/Not Resolved]
  - Periarthritis [Unknown]
  - Platelet count abnormal [Unknown]
  - Sleep disorder [Unknown]

NARRATIVE: CASE EVENT DATE: 2016
